FAERS Safety Report 4393805-7 (Version None)
Quarter: 2004Q3

REPORT INFORMATION
  Report Type: 
  Country: None (occurrence: None)
  Receive Date: 20040706
  Receipt Date: 20040617
  Transmission Date: 20050211
  Serious: Yes (Other)
  Sender: FDA-Public Use
  Company Number: 104331ISR

PATIENT
  Age: 53 Year
  Sex: Female

DRUGS (1)
  1. METHOTREXATE [Suspect]
     Indication: PSORIASIS
     Route: 048
     Dates: start: 20030101, end: 20040301

REACTIONS (3)
  - ANAEMIA [None]
  - BONE MARROW DISORDER [None]
  - MYELODYSPLASTIC SYNDROME [None]
